FAERS Safety Report 7529712-8 (Version None)
Quarter: 2011Q2

REPORT INFORMATION
  Report Type: 
  Country: None (occurrence: None)
  Receive Date: 20110607
  Receipt Date: 20110530
  Transmission Date: 20111010
  Serious: Yes (Other)
  Sender: FDA-Public Use
  Company Number: B0720185A

PATIENT
  Age: 9 Decade
  Sex: Male

DRUGS (1)
  1. ZOVIRAX [Suspect]
     Indication: HERPES ZOSTER
     Dosage: 1500ML PER DAY
     Route: 042
     Dates: end: 20110421

REACTIONS (1)
  - ENCEPHALOPATHY [None]
